FAERS Safety Report 21767553 (Version 3)
Quarter: 2023Q1

REPORT INFORMATION
  Report Type: Report from Study
  Country: JP (occurrence: JP)
  Receive Date: 20221222
  Receipt Date: 20230112
  Transmission Date: 20230418
  Serious: Yes (Hospitalization)
  Sender: FDA-Public Use
  Company Number: JP-PFIZER INC-PV202200123601

PATIENT
  Age: 80 Year
  Sex: Female
  Weight: 59 kg

DRUGS (15)
  1. ENCORAFENIB [Suspect]
     Active Substance: ENCORAFENIB
     Indication: Colorectal cancer metastatic
     Dosage: 225 MG, ONCE DAILY
     Route: 048
     Dates: start: 20221208, end: 20221212
  2. ENCORAFENIB [Suspect]
     Active Substance: ENCORAFENIB
     Dosage: 300 MG, 1X/DAY
     Route: 048
     Dates: start: 20221109, end: 20221111
  3. LEVOLEUCOVORIN CALCIUM [Suspect]
     Active Substance: LEVOLEUCOVORIN CALCIUM
     Indication: Colorectal cancer metastatic
     Dosage: 300 MG, EVERY 2 WEEKS
     Route: 042
     Dates: start: 20221109
  4. CETUXIMAB [Suspect]
     Active Substance: CETUXIMAB
     Indication: Colorectal cancer metastatic
     Dosage: 600 MG, EVERY 2 WEEKS
     Route: 042
     Dates: start: 20221109
  5. FLUOROURACIL [Suspect]
     Active Substance: FLUOROURACIL
     Indication: Colorectal cancer metastatic
     Dosage: 3000 MG, EVERY 2 WEEKS
     Route: 042
     Dates: start: 20221109
  6. OXALIPLATIN [Suspect]
     Active Substance: OXALIPLATIN
     Indication: Colorectal cancer metastatic
     Dosage: 95 MG, EVERY 2 WEEKS
     Route: 042
     Dates: start: 20221109
  7. VEMLIDY [Concomitant]
     Active Substance: TENOFOVIR ALAFENAMIDE FUMARATE
     Indication: Hepatitis B
     Dosage: UNK
     Dates: start: 20221013
  8. MAGNESIUM OXIDE [Concomitant]
     Active Substance: MAGNESIUM OXIDE
     Indication: Constipation
     Dosage: UNK
     Dates: start: 20221018
  9. ALOSENN [SENNOSIDE A+B] [Concomitant]
     Indication: Constipation
     Dosage: UNK
     Dates: start: 20221018
  10. HEPARINOID [Concomitant]
     Indication: Dry skin prophylaxis
     Dosage: UNK
     Dates: start: 20221109
  11. UREA [Concomitant]
     Active Substance: UREA
     Indication: Dry skin prophylaxis
     Dosage: UNK
     Dates: start: 20221009
  12. MINOCYCLINE HYDROCHLORIDE [Concomitant]
     Active Substance: MINOCYCLINE HYDROCHLORIDE
     Indication: Rash
     Dosage: NOT ONGOING
     Dates: start: 20221108
  13. BISOPROLOL FUMARATE [Concomitant]
     Active Substance: BISOPROLOL FUMARATE
     Indication: Atrial fibrillation
     Dosage: UNK
     Dates: start: 20221112
  14. EDOXABAN TOSYLATE [Concomitant]
     Active Substance: EDOXABAN TOSYLATE
     Indication: Atrial fibrillation
     Dosage: UNK
     Dates: start: 20221112
  15. METOCLOPRAMIDE [Concomitant]
     Active Substance: METOCLOPRAMIDE
     Indication: Prophylaxis of nausea and vomiting
     Dosage: UNK
     Dates: start: 20221208

REACTIONS (1)
  - Decreased appetite [Recovered/Resolved]

NARRATIVE: CASE EVENT DATE: 20221213
